FAERS Safety Report 19814488 (Version 1)
Quarter: 2021Q3

REPORT INFORMATION
  Report Type: Spontaneous
  Country: US (occurrence: US)
  Receive Date: 20210910
  Receipt Date: 20210910
  Transmission Date: 20211014
  Serious: No
  Sender: FDA-Public Use
  Company Number: None

PATIENT
  Age: 20 Year
  Sex: Female
  Weight: 108 kg

DRUGS (1)
  1. REGEN?COV [Suspect]
     Active Substance: CASIRIVIMAB\IMDEVIMAB
     Indication: SARS-COV-2 TEST POSITIVE
     Dates: start: 20210909, end: 20210909

REACTIONS (7)
  - Disorientation [None]
  - Asthenia [None]
  - Dizziness [None]
  - Feeling cold [None]
  - Infusion related reaction [None]
  - Blood glucose increased [None]
  - Pyrexia [None]

NARRATIVE: CASE EVENT DATE: 20210909
